FAERS Safety Report 5964796-X (Version None)
Quarter: 2008Q4

REPORT INFORMATION
  Report Type: 
  Country: None (occurrence: None)
  Receive Date: 20081125
  Receipt Date: 20080514
  Transmission Date: 20090506
  Serious: No
  Sender: FDA-Public Use
  Company Number: US-BAYER-200811848BCC

PATIENT
  Age: 77 Year
  Sex: Male
  Weight: 113 kg

DRUGS (8)
  1. ALEVE (CAPLET) [Suspect]
     Indication: BACK PAIN
     Dosage: AS USED: 220 MG  UNIT DOSE: 220 MG
     Route: 048
     Dates: start: 20080504, end: 20080506
  2. ONE-A-DAY MENS 50 PLUS (MULTIVITAMIN/MINERAL) [Suspect]
     Indication: DRUG USE FOR UNKNOWN INDICATION
     Dates: end: 20080507
  3. ASPIRIN [Concomitant]
  4. NAMENDA [Concomitant]
  5. ARICEPT [Concomitant]
  6. PRAVASTATIN [Concomitant]
  7. DITROPAN XL [Concomitant]
  8. ATENOLOL [Concomitant]

REACTIONS (3)
  - INCREASED UPPER AIRWAY SECRETION [None]
  - PRODUCTIVE COUGH [None]
  - SALIVA ALTERED [None]
